FAERS Safety Report 16451762 (Version 2)
Quarter: 2019Q2

REPORT INFORMATION
  Report Type: Spontaneous
  Country: CA (occurrence: CA)
  Receive Date: 20190619
  Receipt Date: 20190624
  Transmission Date: 20190711
  Serious: Yes (Disabling)
  Sender: FDA-Public Use
  Company Number: CA-PFIZER INC-2016141914

PATIENT
  Age: 51 Year
  Sex: Male

DRUGS (12)
  1. LEFLUNOMIDE. [Suspect]
     Active Substance: LEFLUNOMIDE
     Dosage: UNK
  2. XELJANZ [Concomitant]
     Active Substance: TOFACITINIB CITRATE
     Dosage: UNK
     Route: 048
     Dates: start: 20160306
  3. ENBREL [Suspect]
     Active Substance: ETANERCEPT
     Indication: RHEUMATOID ARTHRITIS
     Dosage: 50 MG, QWK
     Route: 058
  4. SIMPONI [Suspect]
     Active Substance: GOLIMUMAB
     Dosage: UNK
     Route: 058
  5. PREDNISONE. [Suspect]
     Active Substance: PREDNISONE
     Dosage: 20 MILLIGRAM
     Route: 065
  6. HYDROXYCHLOROQUINE [Suspect]
     Active Substance: HYDROXYCHLOROQUINE
     Dosage: UNK
     Route: 065
  7. METHOTREXATE SODIUM. [Suspect]
     Active Substance: METHOTREXATE SODIUM
     Indication: RHEUMATOID ARTHRITIS
     Dosage: UNK
     Route: 048
  8. METHOTREXATE SODIUM. [Suspect]
     Active Substance: METHOTREXATE SODIUM
     Indication: RHEUMATOID ARTHRITIS
     Dosage: 30 MG, UNK
     Route: 058
  9. HYDROXYCHLOROQUINE SULFATE. [Suspect]
     Active Substance: HYDROXYCHLOROQUINE SULFATE
     Route: 065
  10. ARAVA [Concomitant]
     Active Substance: LEFLUNOMIDE
     Dosage: 10 MG, 1X/DAY
  11. PLAQUENIL [Suspect]
     Active Substance: HYDROXYCHLOROQUINE SULFATE
     Dosage: UNK
     Route: 065
  12. APO-LEFLUNOMIDE [Suspect]
     Active Substance: LEFLUNOMIDE
     Dosage: UNK
     Route: 065

REACTIONS (11)
  - Drug intolerance [Unknown]
  - Inflammation [Unknown]
  - C-reactive protein abnormal [Unknown]
  - Synovitis [Unknown]
  - Fatigue [Unknown]
  - Therapeutic product effect decreased [Unknown]
  - Drug ineffective [Unknown]
  - Nausea [Unknown]
  - Abdominal discomfort [Unknown]
  - Diarrhoea [Unknown]
  - Headache [Unknown]

NARRATIVE: CASE EVENT DATE: 20160302
